FAERS Safety Report 20491222 (Version 1)
Quarter: 2022Q1

REPORT INFORMATION
  Report Type: Report from Study
  Country: US (occurrence: US)
  Receive Date: 20220218
  Receipt Date: 20220218
  Transmission Date: 20220423
  Serious: No
  Sender: FDA-Public Use
  Company Number: US-MIRM-000210

PATIENT
  Age: 3 Year
  Sex: Male
  Weight: 14 kg

DRUGS (7)
  1. LIVMARLI [Suspect]
     Active Substance: MARALIXIBAT CHLORIDE
     Indication: Alagille syndrome
     Route: 048
     Dates: start: 20210219
  2. 1328870 (GLOBALC3Sep19): Vitamin D [Concomitant]
     Indication: Product used for unknown indication
  3. 1328139 (GLOBALC3Sep19): Rifampin [Concomitant]
     Indication: Product used for unknown indication
  4. 1328777 (GLOBALC3Sep19): Ursodiol [Concomitant]
     Indication: Product used for unknown indication
  5. 2930039 (GLOBALC3Sep19): Hydroxyzine [Concomitant]
     Indication: Product used for unknown indication
  6. 1329006 (GLOBALC3Sep19): Zofran [Concomitant]
     Indication: Product used for unknown indication
  7. 1259193 (GLOBALC3Sep19): Benadryl [Concomitant]
     Indication: Product used for unknown indication

REACTIONS (2)
  - Sleep apnoea syndrome [Unknown]
  - Pruritus [Unknown]
